FAERS Safety Report 24943029 (Version 1)
Quarter: 2025Q1

REPORT INFORMATION
  Report Type: Spontaneous
  Country: FR (occurrence: FR)
  Receive Date: 20250207
  Receipt Date: 20250207
  Transmission Date: 20250408
  Serious: Yes (Other)
  Sender: B BRAUN
  Company Number: FR-B.Braun Medical Inc.-2170726

PATIENT
  Sex: Male
  Weight: 2.838 kg

DRUGS (7)
  1. ACETAMINOPHEN [Suspect]
     Active Substance: ACETAMINOPHEN
     Indication: Influenza like illness
  2. PHENYLEPHRINE [Suspect]
     Active Substance: PHENYLEPHRINE
  3. ALDOMET [Concomitant]
     Active Substance: METHYLDOPA
  4. AMLODIPINE BESYLATE [Concomitant]
     Active Substance: AMLODIPINE BESYLATE
  5. TRANXENE [Concomitant]
     Active Substance: CLORAZEPATE DIPOTASSIUM
  6. CAFFEINE [Suspect]
     Active Substance: CAFFEINE
  7. CHLORPHENIRAMINE [Suspect]
     Active Substance: CHLORPHENIRAMINE

REACTIONS (2)
  - Microcephaly [Not Recovered/Not Resolved]
  - Failure to thrive [Not Recovered/Not Resolved]
